FAERS Safety Report 4427200-9 (Version None)
Quarter: 2004Q3

REPORT INFORMATION
  Report Type: 
  Country: None (occurrence: None)
  Receive Date: 20040726
  Receipt Date: 20030812
  Transmission Date: 20050211
  Serious: No
  Sender: FDA-Public Use
  Company Number: USA030638896

PATIENT
  Age: 64 Year
  Sex: Female
  Weight: 52 kg

DRUGS (4)
  1. FORTEO [Suspect]
     Indication: OSTEOPOROSIS
     Dates: start: 20030601
  2. BEXTRA [Concomitant]
  3. NITRO PATCH(GLYCERYL TRINITRATE) [Concomitant]
  4. PROPRANOLOL [Concomitant]

REACTIONS (8)
  - BLOOD PRESSURE SYSTOLIC INCREASED [None]
  - FATIGUE [None]
  - FLUSHING [None]
  - HEADACHE [None]
  - OVERDOSE [None]
  - PARAESTHESIA [None]
  - SOMNOLENCE [None]
  - WEIGHT INCREASED [None]
